FAERS Safety Report 7546546-9 (Version None)
Quarter: 2011Q2

REPORT INFORMATION
  Report Type: 
  Country: None (occurrence: None)
  Receive Date: 20110614
  Receipt Date: 20110607
  Transmission Date: 20111010
  Serious: Yes (Disabling, Other)
  Sender: FDA-Public Use
  Company Number: JP-PFIZER INC-2011093319

PATIENT
  Age: 50 Year
  Sex: Male
  Weight: 59 kg

DRUGS (6)
  1. SOLU-MEDROL [Suspect]
     Dosage: 125 MG, 1X/DAY
     Route: 042
     Dates: start: 20080702, end: 20080703
  2. SOLU-MEDROL [Suspect]
     Indication: SUDDEN HEARING LOSS
     Dosage: 500 MG, 1X/DAY
     Route: 042
     Dates: start: 20080626, end: 20080627
  3. SAXIZON [Suspect]
     Dosage: 500 MG DAILY WITH 100 MG REDUCTION EVERY 2 DAYS
     Dates: start: 20080616
  4. SOLU-MEDROL [Suspect]
     Dosage: 375 MG, 1X/DAY
     Route: 042
     Dates: start: 20080628, end: 20080629
  5. SOLU-MEDROL [Suspect]
     Dosage: 250 MG, 1X/DAY
     Route: 042
     Dates: start: 20080630, end: 20080701
  6. SOLU-MEDROL [Suspect]
     Dosage: 40 MG, 1X/DAY
     Route: 042
     Dates: start: 20080704

REACTIONS (2)
  - ARTHRITIS [None]
  - OSTEONECROSIS [None]
